FAERS Safety Report 13997250 (Version 1)
Quarter: 2017Q3

REPORT INFORMATION
  Report Type: Spontaneous
  Country: US (occurrence: US)
  Receive Date: 20170921
  Receipt Date: 20170921
  Transmission Date: 20171128
  Serious: Yes (Other)
  Sender: FDA-Public Use
  Company Number: US-DRREDDYS-USA/USA/17/0092472

PATIENT
  Age: 14 Year
  Sex: Male

DRUGS (5)
  1. GEMCITABINE [Suspect]
     Active Substance: GEMCITABINE\GEMCITABINE HYDROCHLORIDE
     Indication: NON-RENAL CELL CARCINOMA OF KIDNEY
     Route: 065
  2. CARBOPLATIN. [Suspect]
     Active Substance: CARBOPLATIN
     Indication: NON-RENAL CELL CARCINOMA OF KIDNEY
     Route: 065
  3. CISPLATIN. [Suspect]
     Active Substance: CISPLATIN
     Indication: NON-RENAL CELL CARCINOMA OF KIDNEY
     Route: 065
  4. PACLITAXEL. [Suspect]
     Active Substance: PACLITAXEL
     Indication: NON-RENAL CELL CARCINOMA OF KIDNEY
     Route: 065
  5. BORTEZOMIB [Suspect]
     Active Substance: BORTEZOMIB
     Indication: NON-RENAL CELL CARCINOMA OF KIDNEY
     Dosage: 1-1.5 MG/M2
     Route: 065

REACTIONS (3)
  - Bone marrow failure [Unknown]
  - Transaminases increased [Unknown]
  - Blood creatinine increased [Unknown]
